FAERS Safety Report 19116848 (Version 4)
Quarter: 2021Q3

REPORT INFORMATION
  Report Type: Report from Study
  Country: US (occurrence: US)
  Receive Date: 20210409
  Receipt Date: 20210708
  Transmission Date: 20211014
  Serious: Yes (Other)
  Sender: FDA-Public Use
  Company Number: US-BIOVITRUM-2021US0692

PATIENT
  Age: 8 Month
  Sex: Female

DRUGS (1)
  1. KINERET [Suspect]
     Active Substance: ANAKINRA
     Indication: STILL^S DISEASE
     Route: 058
     Dates: start: 20201231

REACTIONS (8)
  - Still^s disease [Unknown]
  - Product colour issue [Unknown]
  - Product formulation issue [Unknown]
  - Off label use [Not Recovered/Not Resolved]
  - Skin discolouration [Unknown]
  - Erythema [Unknown]
  - Developmental delay [Unknown]
  - Condition aggravated [Unknown]

NARRATIVE: CASE EVENT DATE: 20201231
